FAERS Safety Report 18169557 (Version 2)
Quarter: 2021Q2

REPORT INFORMATION
  Report Type: Spontaneous
  Country: US (occurrence: US)
  Receive Date: 20200819
  Receipt Date: 20210531
  Transmission Date: 20210717
  Serious: Yes (Death, Other)
  Sender: FDA-Public Use
  Company Number: US-GLAXOSMITHKLINE-US2020163952

PATIENT
  Sex: Female

DRUGS (3)
  1. ZANTAC [Suspect]
     Active Substance: RANITIDINE HYDROCHLORIDE
     Indication: DYSPEPSIA
     Dosage: 400 MG|PRESCRIPTION
     Route: 065
     Dates: start: 198001, end: 200301
  2. ZANTAC [Suspect]
     Active Substance: RANITIDINE HYDROCHLORIDE
     Dates: start: 19700115, end: 19800115
  3. ZANTAC [Suspect]
     Active Substance: RANITIDINE HYDROCHLORIDE
     Indication: DYSPEPSIA
     Dosage: 400 MG|PRESCRIPTION
     Route: 065
     Dates: start: 198001, end: 200301

REACTIONS (3)
  - Pancreatic carcinoma [Unknown]
  - Neoplasm malignant [Fatal]
  - Gastric cancer [Unknown]
